FAERS Safety Report 11801465 (Version 4)
Quarter: 2016Q1

REPORT INFORMATION
  Report Type: Spontaneous
  Country: GB (occurrence: GB)
  Receive Date: 20151204
  Receipt Date: 20160330
  Transmission Date: 20160525
  Serious: Yes (Other)
  Sender: FDA-Public Use
  Company Number: GB-BAYER-2015-475679

PATIENT
  Age: 32 Year
  Sex: Female
  Weight: 83 kg

DRUGS (1)
  1. MIRENA [Suspect]
     Active Substance: LEVONORGESTREL
     Dosage: 20 MCG/24HR, CONT
     Route: 015
     Dates: start: 20110913, end: 20151027

REACTIONS (40)
  - Frustration tolerance decreased [Recovering/Resolving]
  - Hormone level abnormal [Recovering/Resolving]
  - Chills [Recovering/Resolving]
  - Autophobia [Recovering/Resolving]
  - Vulvovaginal dryness [Recovering/Resolving]
  - Genital haemorrhage [Recovering/Resolving]
  - Sinusitis [Recovering/Resolving]
  - Muscle spasms [Recovering/Resolving]
  - Pain in extremity [Recovering/Resolving]
  - Anosmia [Recovering/Resolving]
  - Rash macular [Recovering/Resolving]
  - Night sweats [Recovering/Resolving]
  - Vulvovaginal pain [Recovering/Resolving]
  - Decreased appetite [Recovering/Resolving]
  - Nausea [Recovering/Resolving]
  - Feeling abnormal [Recovering/Resolving]
  - Back pain [Recovered/Resolved]
  - Menstruation delayed [Recovering/Resolving]
  - Agitation [Recovering/Resolving]
  - Fatigue [Recovering/Resolving]
  - Suicidal ideation [Recovering/Resolving]
  - Therapeutic response unexpected [None]
  - Anxiety [Recovering/Resolving]
  - Anxiety [Recovering/Resolving]
  - Depressed mood [Recovering/Resolving]
  - Anxiety [Recovering/Resolving]
  - Pelvic infection [Recovering/Resolving]
  - Ageusia [Recovering/Resolving]
  - Vaginal haemorrhage [Recovering/Resolving]
  - Mood altered [Recovering/Resolving]
  - Medical device discomfort [Recovering/Resolving]
  - Vaginal discharge [Recovering/Resolving]
  - Emotional disorder [Recovering/Resolving]
  - Panic attack [Recovering/Resolving]
  - Aphasia [Recovering/Resolving]
  - Pain [Recovering/Resolving]
  - Pelvic pain [Recovering/Resolving]
  - Sciatica [Recovering/Resolving]
  - Seborrhoea [Recovering/Resolving]
  - Nausea [Recovering/Resolving]

NARRATIVE: CASE EVENT DATE: 2011
